FAERS Safety Report 4432579-8 (Version None)
Quarter: 2004Q3

REPORT INFORMATION
  Report Type: 
  Country: None (occurrence: None)
  Receive Date: 20040820
  Receipt Date: 20040806
  Transmission Date: 20050211
  Serious: Yes (Life-Threatening, Hospitalization)
  Sender: FDA-Public Use
  Company Number: TEST00204002653

PATIENT
  Age: 77 Year
  Sex: Male

DRUGS (5)
  1. ANDROGEL [Suspect]
     Indication: HYPOGONADISM
     Dosage: 5 G QD TD
     Dates: start: 20030618
  2. ZOLOFT [Concomitant]
  3. LISINOPRIL [Concomitant]
  4. MULTIVITAMIN [Concomitant]
  5. CALCIUM WITH VITAMIN D () [Concomitant]

REACTIONS (6)
  - DEEP VEIN THROMBOSIS [None]
  - HAEMOPTYSIS [None]
  - PULMONARY EMBOLISM [None]
  - PULMONARY HYPERTENSION [None]
  - PULMONARY INFARCTION [None]
  - VENTRICULAR DYSFUNCTION [None]
